FAERS Safety Report 21507579 (Version 1)
Quarter: 2022Q4

REPORT INFORMATION
  Report Type: Spontaneous
  Country: US (occurrence: US)
  Receive Date: 20221026
  Receipt Date: 20221026
  Transmission Date: 20230113
  Serious: No
  Sender: FDA-Public Use
  Company Number: US-PFIZER INC-PV202200089087

PATIENT
  Age: 77 Year
  Sex: Female

DRUGS (3)
  1. XELJANZ [Suspect]
     Active Substance: TOFACITINIB CITRATE
     Dosage: UNK
  2. PREDNISONE [Concomitant]
     Active Substance: PREDNISONE
     Dosage: UNK
  3. PREDNISONE [Concomitant]
     Active Substance: PREDNISONE
     Dosage: 2 MG, DAILY (2MG A DAY)
     Dates: start: 202210

REACTIONS (7)
  - Arthralgia [Unknown]
  - Joint stiffness [Unknown]
  - Peripheral swelling [Unknown]
  - Feeling hot [Unknown]
  - Gait disturbance [Recovering/Resolving]
  - Musculoskeletal stiffness [Unknown]
  - Pain [Recovering/Resolving]
